FAERS Safety Report 16571984 (Version 1)
Quarter: 2019Q3

REPORT INFORMATION
  Report Type: Spontaneous
  Country: AU (occurrence: AU)
  Receive Date: 20190715
  Receipt Date: 20190715
  Transmission Date: 20191004
  Serious: Yes (Death, Other)
  Sender: FDA-Public Use
  Company Number: AU-PFIZER INC-2018377185

PATIENT
  Age: 41 Year
  Sex: Female

DRUGS (4)
  1. CLOPINE [Suspect]
     Active Substance: CLOZAPINE
     Dosage: 350 MG, DAILY
     Dates: start: 19990423
  2. CLOPINE [Suspect]
     Active Substance: CLOZAPINE
     Dosage: 350 MG, UNK
  3. GEMCITABINE HYDROCHLORIDE. [Suspect]
     Active Substance: GEMCITABINE HYDROCHLORIDE
     Indication: CHOLANGIOCARCINOMA
     Dosage: UNK, CYCLIC
  4. CARBOPLATIN. [Suspect]
     Active Substance: CARBOPLATIN
     Indication: CHOLANGIOCARCINOMA
     Dosage: UNK, CYCLIC

REACTIONS (6)
  - White blood cell count decreased [Not Recovered/Not Resolved]
  - Hepatic cancer metastatic [Fatal]
  - Neutropenia [Recovered/Resolved]
  - Platelet count decreased [Unknown]
  - Off label use [Unknown]
  - Product use in unapproved indication [Unknown]

NARRATIVE: CASE EVENT DATE: 20180917
